FAERS Safety Report 9688459 (Version 2)
Quarter: 2013Q4

REPORT INFORMATION
  Report Type: Spontaneous
  Country: CN (occurrence: CN)
  Receive Date: 20131114
  Receipt Date: 20131203
  Transmission Date: 20140711
  Serious: Yes (Other)
  Sender: FDA-Public Use
  Company Number: CN-BAYER-2013-134785

PATIENT
  Sex: Female

DRUGS (3)
  1. GLUCOBAY [Suspect]
     Indication: DIABETES MELLITUS
     Route: 048
  2. GLUCOBAY [Suspect]
     Indication: DIABETES MELLITUS
     Route: 048
  3. GLUCOBAY [Suspect]
     Indication: DIABETES MELLITUS
     Dosage: UNK

REACTIONS (2)
  - Glucose urine present [None]
  - Suspected counterfeit product [None]
